FAERS Safety Report 24938077 (Version 1)
Quarter: 2025Q1

REPORT INFORMATION
  Report Type: Spontaneous
  Country: US (occurrence: None)
  Receive Date: 20250206
  Receipt Date: 20250206
  Transmission Date: 20250409
  Serious: Yes (Life-Threatening, Hospitalization)
  Sender: FDA-CTU
  Company Number: None

PATIENT
  Age: 43 Year
  Sex: Male
  Weight: 131.00 kg

DRUGS (2)
  1. METHOXY POLYETHYLENE GLYCOL-EPOETIN BETA [Suspect]
     Active Substance: METHOXY POLYETHYLENE GLYCOL-EPOETIN BETA
     Indication: Nephrogenic anaemia
     Route: 042
     Dates: start: 20250203, end: 20250203
  2. VENOFER [Suspect]
     Active Substance: IRON SUCROSE

REACTIONS (3)
  - Feeling abnormal [None]
  - Generalised tonic-clonic seizure [None]
  - Pulse absent [None]

NARRATIVE: CASE EVENT DATE: 20250203
